FAERS Safety Report 18538588 (Version 3)
Quarter: 2022Q3

REPORT INFORMATION
  Report Type: Spontaneous
  Country: JP (occurrence: JP)
  Receive Date: 20201124
  Receipt Date: 20220713
  Transmission Date: 20221027
  Serious: Yes (Other)
  Sender: FDA-Public Use
  Company Number: JP-GSKNCCC-CASE-01085409_AE-36930

PATIENT

DRUGS (1)
  1. ZOVIRAX [Suspect]
     Active Substance: ACYCLOVIR
     Indication: Antiviral prophylaxis
     Dosage: 200 MG, QD
     Route: 048

REACTIONS (6)
  - Skin cancer [Unknown]
  - Bladder cancer [Unknown]
  - Myocardial infarction [Unknown]
  - Cardiac failure chronic [Unknown]
  - Incorrect product administration duration [Unknown]
  - Off label use [Unknown]
